FAERS Safety Report 5495633-8 (Version None)
Quarter: 2007Q4

REPORT INFORMATION
  Report Type: 
  Country: None (occurrence: None)
  Receive Date: 20071025
  Receipt Date: 20071016
  Transmission Date: 20080405
  Serious: Yes (Other)
  Sender: FDA-Public Use
  Company Number: US-JNJFOC-20071004668

PATIENT
  Sex: Female
  Weight: 74.84 kg

DRUGS (4)
  1. DURAGESIC-100 [Suspect]
     Indication: PAIN
     Route: 062
  2. BENTYL [Concomitant]
     Indication: HIATUS HERNIA
     Route: 048
  3. PRILOSEC [Concomitant]
     Indication: HIATUS HERNIA
     Route: 048
  4. DIOVAN [Concomitant]
     Indication: HYPERTENSION
     Route: 048

REACTIONS (3)
  - CONGENITAL CYSTIC KIDNEY DISEASE [None]
  - PAIN [None]
  - SINUS DISORDER [None]
